FAERS Safety Report 6166629-8 (Version None)
Quarter: 2009Q2

REPORT INFORMATION
  Report Type: 
  Country: None (occurrence: None)
  Receive Date: 20090422
  Receipt Date: 20090407
  Transmission Date: 20091009
  Serious: Yes (Hospitalization)
  Sender: FDA-Public Use
  Company Number: IMP_04334_2009

PATIENT
  Sex: Female

DRUGS (1)
  1. BUDEPRION 150 MG (NOT SPECIFIED) [Suspect]
     Indication: POST-TRAUMATIC STRESS DISORDER
     Dosage: 150 MG, EVERY MORNING, ORAL
     Route: 048
     Dates: start: 20080929, end: 20081003

REACTIONS (9)
  - ANAEMIA [None]
  - ANXIETY [None]
  - DEHYDRATION [None]
  - FEELING ABNORMAL [None]
  - HYPOMANIA [None]
  - INSOMNIA [None]
  - PANIC ATTACK [None]
  - PRODUCT SUBSTITUTION ISSUE [None]
  - PSYCHOMOTOR HYPERACTIVITY [None]
